FAERS Safety Report 25673888 (Version 1)
Quarter: 2025Q3

REPORT INFORMATION
  Report Type: Report from Study
  Country: US (occurrence: US)
  Receive Date: 20250813
  Receipt Date: 20250813
  Transmission Date: 20251021
  Serious: Yes (Other)
  Sender: UNITED THERAPEUTICS
  Company Number: US-UNITED THERAPEUTICS-UNT-2025-007779

PATIENT
  Sex: Female

DRUGS (11)
  1. TREPROSTINIL [Suspect]
     Active Substance: TREPROSTINIL
     Indication: Pulmonary arterial hypertension
     Dosage: 4 MG (2 TABLETS OF 0.25 MG AND 1 TABLET OF 2.5 MG AND 1 MG EACH), TID
     Dates: end: 202503
  2. TREPROSTINIL [Suspect]
     Active Substance: TREPROSTINIL
     Dosage: 4.25 MG (1 TABLET OF 1 MG AND 2.5 MG EACH AND 3 TABLETS OF 0.25 MG), TID
     Dates: start: 202503, end: 2025
  3. TREPROSTINIL [Suspect]
     Active Substance: TREPROSTINIL
     Dosage: 5 MG, TID
     Dates: start: 2025, end: 2025
  4. TREPROSTINIL [Suspect]
     Active Substance: TREPROSTINIL
  5. TREPROSTINIL [Suspect]
     Active Substance: TREPROSTINIL
  6. TREPROSTINIL [Suspect]
     Active Substance: TREPROSTINIL
  7. ORENITRAM [Suspect]
     Active Substance: TREPROSTINIL
     Indication: Pulmonary arterial hypertension
  8. ORENITRAM [Suspect]
     Active Substance: TREPROSTINIL
     Indication: Pulmonary arterial hypertension
  9. ORENITRAM [Suspect]
     Active Substance: TREPROSTINIL
     Indication: Pulmonary arterial hypertension
  10. ORENITRAM [Suspect]
     Active Substance: TREPROSTINIL
     Indication: Pulmonary arterial hypertension
  11. OPSUMIT [Concomitant]
     Active Substance: MACITENTAN
     Indication: Product used for unknown indication

REACTIONS (10)
  - Loss of consciousness [Unknown]
  - Flushing [Recovered/Resolved]
  - Headache [Not Recovered/Not Resolved]
  - Contusion [Recovering/Resolving]
  - Nausea [Unknown]
  - Dizziness [Unknown]
  - Peripheral swelling [Unknown]
  - Weight fluctuation [Unknown]
  - Palpitations [Unknown]
  - Hypotension [Recovered/Resolved]

NARRATIVE: CASE EVENT DATE: 20250101
